FAERS Safety Report 5786813-2 (Version None)
Quarter: 2008Q2

REPORT INFORMATION
  Report Type: 
  Country: None (occurrence: None)
  Receive Date: 20080618
  Receipt Date: 20080610
  Transmission Date: 20081010
  Serious: Yes (Hospitalization)
  Sender: FDA-Public Use
  Company Number: 100#02#2008-03170

PATIENT
  Sex: Male

DRUGS (2)
  1. AZITHROMYCIN [Suspect]
     Indication: INFLUENZA
  2. AZITHROMYCIN [Suspect]
     Indication: SINUSITIS

REACTIONS (1)
  - RHEUMATOID ARTHRITIS [None]
